FAERS Safety Report 9187007 (Version 1)
Quarter: 2013Q1

REPORT INFORMATION
  Report Type: Spontaneous
  Country: US (occurrence: US)
  Receive Date: 20130325
  Receipt Date: 20130325
  Transmission Date: 20140127
  Serious: No
  Sender: FDA-Public Use
  Company Number: US-PFIZER INC-2013089488

PATIENT
  Age: 22 Year
  Sex: Female

DRUGS (1)
  1. CALAN SR [Suspect]
     Dosage: 180 MG, 1X/DAY
     Route: 048

REACTIONS (1)
  - Migraine [Unknown]
